FAERS Safety Report 4719127-X (Version None)
Quarter: 2005Q3

REPORT INFORMATION
  Report Type: 
  Country: None (occurrence: None)
  Receive Date: 20050720
  Receipt Date: 20050707
  Transmission Date: 20060218
  Serious: Yes (Hospitalization)
  Sender: FDA-Public Use
  Company Number: 2005097952

PATIENT
  Age: 69 Year
  Sex: Female

DRUGS (4)
  1. PREDNISONE [Suspect]
     Indication: POLYMYALGIA RHEUMATICA
     Dosage: 5 MG (5 MG, 1 IN 1 D), ORAL
     Route: 048
  2. FOSAMAX [Suspect]
     Indication: ILL-DEFINED DISORDER
     Dosage: (70 MG, 1 N 1 WK), ORAL
     Route: 048
  3. CALCICHEW-D3 (CALCIUM CARBONATE, COLECALCIFEROL) [Concomitant]
  4. PLENDIL [Concomitant]

REACTIONS (3)
  - ABDOMINAL PAIN [None]
  - DIARRHOEA HAEMORRHAGIC [None]
  - VOMITING [None]
